FAERS Safety Report 7015143-6 (Version None)
Quarter: 2010Q3

REPORT INFORMATION
  Report Type: 
  Country: None (occurrence: None)
  Receive Date: 20100927
  Receipt Date: 20090828
  Transmission Date: 20110219
  Serious: No
  Sender: FDA-Public Use
  Company Number: US-ASTRAZENECA-2009SE10413

PATIENT
  Age: 897 Month
  Sex: Female

DRUGS (3)
  1. ARIMIDEX [Suspect]
     Indication: BREAST CANCER
     Dosage: DAILY
     Route: 048
     Dates: start: 20020901
  2. FOSAMAX [Concomitant]
  3. LIPITOR [Concomitant]

REACTIONS (4)
  - ARTHRITIS [None]
  - FATIGUE [None]
  - HYPERPARATHYROIDISM SECONDARY [None]
  - VITAMIN D DECREASED [None]
